FAERS Safety Report 5625926-2 (Version None)
Quarter: 2008Q1

REPORT INFORMATION
  Report Type: 
  Country: None (occurrence: None)
  Receive Date: 20080212
  Receipt Date: 20080212
  Transmission Date: 20080703
  Serious: Yes (Other)
  Sender: FDA-Public Use
  Company Number: None

PATIENT
  Sex: Female
  Weight: 71.6683 kg

DRUGS (1)
  1. TARGET BRAND COLD HOT CREAM   METHYL SALICYLATE 30% MENTHOL 10%  TARGE [Suspect]
     Indication: CARPAL TUNNEL SYNDROME
     Dosage: TWO THIN LINES -- ONCE   TRANSDERMAL
     Route: 062
     Dates: start: 20071001, end: 20071001

REACTIONS (3)
  - APPLICATION SITE DISCOLOURATION [None]
  - APPLICATION SITE IRRITATION [None]
  - PHARMACEUTICAL PRODUCT COMPLAINT [None]
